FAERS Safety Report 24252019 (Version 1)
Quarter: 2024Q3

REPORT INFORMATION
  Report Type: Report from Study
  Country: IL (occurrence: IL)
  Receive Date: 20240827
  Receipt Date: 20240827
  Transmission Date: 20241016
  Serious: Yes (Hospitalization)
  Sender: EMD SERONO INC
  Company Number: IL-Merck Healthcare KGaA-2024044714

PATIENT
  Sex: Female

DRUGS (1)
  1. MAVENCLAD [Suspect]
     Active Substance: CLADRIBINE
     Indication: Multiple sclerosis
     Dates: start: 20230220

REACTIONS (1)
  - Hepatic enzyme increased [Not Recovered/Not Resolved]
